FAERS Safety Report 8618879-6 (Version None)
Quarter: 2012Q3

REPORT INFORMATION
  Report Type: 
  Country: None (occurrence: None)
  Receive Date: 20120824
  Receipt Date: 20120821
  Transmission Date: 20120928
  Serious: Yes (Other)
  Sender: FDA-Public Use
  Company Number: CA-PFIZER INC-2012205744

PATIENT
  Age: 54 Year
  Sex: Female

DRUGS (2)
  1. PRISTIQ [Suspect]
     Indication: DEPRESSION
     Dosage: 50 MG, DAILY
     Route: 048
     Dates: start: 20090101
  2. CELEBREX [Concomitant]
     Indication: ARTHRITIS
     Dosage: 200 MG DAILY

REACTIONS (2)
  - MEDICATION RESIDUE [None]
  - BLOOD PRESSURE ABNORMAL [None]
